FAERS Safety Report 7518340-6 (Version None)
Quarter: 2011Q2

REPORT INFORMATION
  Report Type: 
  Country: None (occurrence: None)
  Receive Date: 20110512
  Receipt Date: 20110207
  Transmission Date: 20111010
  Serious: No
  Sender: FDA-Public Use
  Company Number: 1000018707

PATIENT
  Age: 58 Year
  Sex: Female

DRUGS (6)
  1. PERCOCET [Suspect]
     Indication: PAIN
  2. SAVELLA [Suspect]
     Indication: FIBROMYALGIA
     Dosage: 25 MG (12.5 MG, 2 IN 1 D), ORAL, 50 MG (25 MG, 2 IN 1 D), ORAL, 150 MG (75 MG, 2 IN 1 D), ORAL, 200
     Route: 046
     Dates: start: 20100101
  3. SAVELLA [Suspect]
     Indication: FIBROMYALGIA
     Dosage: 25 MG (12.5 MG, 2 IN 1 D), ORAL, 50 MG (25 MG, 2 IN 1 D), ORAL, 150 MG (75 MG, 2 IN 1 D), ORAL, 200
     Route: 046
     Dates: start: 20101101, end: 20101101
  4. SAVELLA [Suspect]
     Indication: FIBROMYALGIA
     Dosage: 25 MG (12.5 MG, 2 IN 1 D), ORAL, 50 MG (25 MG, 2 IN 1 D), ORAL, 150 MG (75 MG, 2 IN 1 D), ORAL, 200
     Route: 046
     Dates: start: 20110101
  5. ATIVAN [Suspect]
     Indication: ANXIETY
  6. BETA BLOCKER (BETA BLOCKER) (BETA BLOCKER) [Concomitant]

REACTIONS (1)
  - MYDRIASIS [None]
